FAERS Safety Report 14038669 (Version 3)
Quarter: 2017Q4

REPORT INFORMATION
  Report Type: Spontaneous
  Country: FR (occurrence: FR)
  Receive Date: 20171004
  Receipt Date: 20171128
  Transmission Date: 20180321
  Serious: Yes (Hospitalization)
  Sender: FDA-Public Use
  Company Number: FR-PFIZER INC-2017420368

PATIENT
  Sex: Female

DRUGS (5)
  1. MIFEGYNE [Suspect]
     Active Substance: MIFEPRISTONE
     Indication: ABORTION INDUCED
     Dosage: 800 MG, UNK (600 MG THEN 200 MG AFTER VOMITING, [800 MG MILLIGRAM(S) TOTAL])
     Route: 064
     Dates: start: 20170329, end: 20170329
  2. VOLTARENE /00372303/ [Suspect]
     Active Substance: DICLOFENAC DIETHYLAMINE
     Indication: PAIN
     Dosage: UNK
     Route: 064
     Dates: start: 201706, end: 201707
  3. LEVOTHYROX [Suspect]
     Active Substance: LEVOTHYROXINE
     Indication: THYROIDECTOMY
     Dosage: UNK
     Route: 064
     Dates: start: 2009
  4. CYTOTEC [Suspect]
     Active Substance: MISOPROSTOL
     Indication: ABORTION INDUCED
     Dosage: 2 DF, SINGLE [400 ?G MICROGRAM(S) TOTAL]
     Route: 064
     Dates: start: 20170331, end: 20170331
  5. ADVIL [Suspect]
     Active Substance: IBUPROFEN
     Indication: PAIN
     Dosage: UNK
     Route: 064
     Dates: start: 201706, end: 201707

REACTIONS (3)
  - Maternal exposure during pregnancy [Unknown]
  - Foetal growth restriction [Not Recovered/Not Resolved]
  - Foetal heart rate disorder [Not Recovered/Not Resolved]

NARRATIVE: CASE EVENT DATE: 20170329
